FAERS Safety Report 23655163 (Version 1)
Quarter: 2024Q1

REPORT INFORMATION
  Report Type: Spontaneous
  Country: US (occurrence: US)
  Receive Date: 20240320
  Receipt Date: 20240320
  Transmission Date: 20240410
  Serious: No
  Sender: FDA-Public Use
  Company Number: US-BRISTOL-MYERS SQUIBB COMPANY-2024-044615

PATIENT
  Sex: Male

DRUGS (2)
  1. AZACITIDINE [Suspect]
     Active Substance: AZACITIDINE
     Indication: Neoplasm
  2. GILTERITINIB [Suspect]
     Active Substance: GILTERITINIB
     Indication: Neoplasm

REACTIONS (1)
  - Off label use [Unknown]
